FAERS Safety Report 9578163 (Version 1)
Quarter: 2013Q4

REPORT INFORMATION
  Report Type: Spontaneous
  Country: US (occurrence: US)
  Receive Date: 20131001
  Receipt Date: 20131001
  Transmission Date: 20140711
  Serious: No
  Sender: FDA-Public Use
  Company Number: US-AMGEN-USASP2013011911

PATIENT
  Age: 70 Year
  Sex: Female

DRUGS (3)
  1. ENBREL [Suspect]
     Indication: PRODUCT USED FOR UNKNOWN INDICATION
     Dosage: 25 MG, Q3DAYS
     Route: 058
     Dates: start: 20120125
  2. LISINOPRIL [Concomitant]
     Dosage: UNK
  3. MICARDIS [Concomitant]

REACTIONS (4)
  - Cough [Unknown]
  - Asthma [Unknown]
  - Hypertonic bladder [Unknown]
  - Anxiety [Unknown]
